FAERS Safety Report 7495787-8 (Version None)
Quarter: 2011Q2

REPORT INFORMATION
  Report Type: 
  Country: None (occurrence: None)
  Receive Date: 20110523
  Receipt Date: 20110509
  Transmission Date: 20111010
  Serious: Yes (Disabling, Other)
  Sender: FDA-Public Use
  Company Number: GB-ELI_LILLY_AND_COMPANY-GB201105002406

PATIENT
  Age: 63 Year
  Sex: Male
  Weight: 119 kg

DRUGS (9)
  1. LANTUS [Concomitant]
  2. METFORMIN [Concomitant]
     Dosage: 1 G, UNK
  3. ACETAMINOPHEN [Concomitant]
     Dosage: 500 MG, UNK
  4. CYMBALTA [Suspect]
     Dosage: UNK, UNKNOWN
     Dates: end: 20110225
  5. SIMVASTATIN [Concomitant]
     Dosage: 40 MG, UNK
  6. PERINDOPRIL ERBUMINE [Concomitant]
     Dosage: 8 MG, UNK
  7. CYMBALTA [Suspect]
     Indication: DEPRESSION
     Dosage: 60 MG, UNK
     Route: 048
     Dates: start: 20101112, end: 20110111
  8. IRBESARTAN [Concomitant]
     Dosage: 300 MG, UNK
  9. LERCANIDIPINE [Concomitant]
     Dosage: 20 MG, UNK

REACTIONS (6)
  - SUICIDAL IDEATION [None]
  - DRUG INEFFECTIVE [None]
  - TINNITUS [None]
  - DRUG WITHDRAWAL SYNDROME [None]
  - DYSAESTHESIA [None]
  - VERTIGO [None]
